FAERS Safety Report 6652150-7 (Version None)
Quarter: 2010Q1

REPORT INFORMATION
  Report Type: 
  Country: None (occurrence: None)
  Receive Date: 20100323
  Receipt Date: 20100317
  Transmission Date: 20100710
  Serious: Yes (Other)
  Sender: FDA-Public Use
  Company Number: 1000012552

PATIENT
  Age: 34 Year
  Sex: Male

DRUGS (3)
  1. CELEXA [Suspect]
  2. VISTARIL [Suspect]
  3. CLOZAPINE (25 MILLIGRAM, TABLETS) [Suspect]

REACTIONS (7)
  - ANTIPSYCHOTIC DRUG LEVEL INCREASED [None]
  - DIARRHOEA [None]
  - GASTROENTERITIS [None]
  - GRANULOCYTOPENIA [None]
  - ILEUS PARALYTIC [None]
  - PNEUMONIA [None]
  - VOMITING [None]
